FAERS Safety Report 12834204 (Version 1)
Quarter: 2016Q4

REPORT INFORMATION
  Report Type: Spontaneous
  Country: NL (occurrence: NL)
  Receive Date: 20161010
  Receipt Date: 20161010
  Transmission Date: 20170207
  Serious: Yes (Death)
  Sender: FDA-Public Use
  Company Number: NL-HERITAGE PHARMACEUTICALS-2016HTG00248

PATIENT
  Sex: Male
  Weight: .73 kg

DRUGS (2)
  1. ANTENATAL CORTICOSTEROIDS [Concomitant]
     Route: 065
  2. NIFEDIPINE. [Suspect]
     Active Substance: NIFEDIPINE
     Indication: TOCOLYSIS
     Dosage: 20 MG, EVERY 6 HOURS
     Route: 064

REACTIONS (3)
  - Necrotising enterocolitis neonatal [Fatal]
  - Foetal exposure during pregnancy [Fatal]
  - Septic shock [Fatal]
